FAERS Safety Report 10142438 (Version 1)
Quarter: 2014Q2

REPORT INFORMATION
  Report Type: Spontaneous
  Country: US (occurrence: US)
  Receive Date: 20140430
  Receipt Date: 20140430
  Transmission Date: 20141212
  Serious: Yes (Other)
  Sender: FDA-Public Use
  Company Number: US-AMGEN INC.-USASP2014030673

PATIENT
  Age: 7 Decade
  Sex: Female

DRUGS (1)
  1. EPOGEN [Suspect]
     Indication: ANAEMIA
     Dosage: BETWEEN 12,000 AND 15,000 UNITS THREE TIMES A WEEK
     Route: 065

REACTIONS (2)
  - Leg amputation [Unknown]
  - Drug effect incomplete [Unknown]
